FAERS Safety Report 14901786 (Version 2)
Quarter: 2018Q2

REPORT INFORMATION
  Report Type: Spontaneous
  Country: AU (occurrence: AU)
  Receive Date: 20180516
  Receipt Date: 20180612
  Transmission Date: 20180711
  Serious: Yes (Other)
  Sender: FDA-Public Use
  Company Number: AU-PFIZER INC-2018187132

PATIENT
  Sex: Female
  Weight: 110 kg

DRUGS (3)
  1. GABAPENTIN. [Suspect]
     Active Substance: GABAPENTIN
     Dosage: UNK
     Dates: end: 20180505
  2. LYRICA [Suspect]
     Active Substance: PREGABALIN
     Dosage: 150 MG, 2X/DAY
  3. LYRICA [Suspect]
     Active Substance: PREGABALIN
     Indication: NEURALGIA
     Dosage: 600 MG, 3X/DAY
     Dates: start: 20180506

REACTIONS (13)
  - Hypoaesthesia [Unknown]
  - Lip swelling [Unknown]
  - Swelling [Recovered/Resolved]
  - Diverticulitis [Unknown]
  - Infectious colitis [Unknown]
  - Swollen tongue [Unknown]
  - Feeling abnormal [Recovered/Resolved]
  - Dizziness [Recovered/Resolved]
  - Overdose [Unknown]
  - Gastrointestinal disorder [Unknown]
  - Malaise [Unknown]
  - Incoherent [Unknown]
  - Tremor [Unknown]
